FAERS Safety Report 4928495-5 (Version None)
Quarter: 2006Q1

REPORT INFORMATION
  Report Type: 
  Country: None (occurrence: None)
  Receive Date: 20060223
  Receipt Date: 20060214
  Transmission Date: 20060701
  Serious: Yes (Hospitalization)
  Sender: FDA-Public Use
  Company Number: 2006-02-0700

PATIENT
  Age: 73 Year
  Sex: Female

DRUGS (1)
  1. TEMODAL [Suspect]
     Indication: MALIGNANT MELANOMA
     Dosage: 200MG/M^2 X5D ORAL
     Route: 048
     Dates: start: 20051101

REACTIONS (3)
  - LEG AMPUTATION [None]
  - VASCULITIS GASTROINTESTINAL [None]
  - VASCULITIS NECROTISING [None]
